FAERS Safety Report 4547062-9 (Version None)
Quarter: 2005Q1

REPORT INFORMATION
  Report Type: 
  Country: None (occurrence: None)
  Receive Date: 20050107
  Receipt Date: 20041216
  Transmission Date: 20050727
  Serious: Yes (Life-Threatening, Hospitalization)
  Sender: FDA-Public Use
  Company Number: PHEH2004US13425

PATIENT
  Age: 74 Year
  Sex: Male
  Weight: 132 kg

DRUGS (3)
  1. ENALAPRIL [Suspect]
     Dosage: 10 MG, QD
     Route: 048
     Dates: end: 20041215
  2. GLEEVEC [Suspect]
     Indication: CHRONIC MYELOID LEUKAEMIA
     Dosage: 100 MG, TID
     Dates: start: 20041116, end: 20041214
  3. GLEEVEC [Suspect]
     Dosage: 100 MG, QID
     Route: 048
     Dates: start: 20041214, end: 20041215

REACTIONS (5)
  - ANGIONEUROTIC OEDEMA [None]
  - DYSPHAGIA [None]
  - DYSPNOEA [None]
  - LARYNGEAL OEDEMA [None]
  - OROPHARYNGEAL SWELLING [None]
